FAERS Safety Report 12435497 (Version 1)
Quarter: 2016Q2

REPORT INFORMATION
  Report Type: Spontaneous
  Country: US (occurrence: US)
  Receive Date: 20160603
  Receipt Date: 20160603
  Transmission Date: 20160815
  Serious: No
  Sender: FDA-Public Use
  Company Number: US-ROCHE-1603051

PATIENT
  Sex: Female

DRUGS (4)
  1. NEXIUM [Concomitant]
     Active Substance: ESOMEPRAZOLE MAGNESIUM
     Route: 065
  2. KLONOPIN [Suspect]
     Active Substance: CLONAZEPAM
     Indication: INSOMNIA
     Dosage: 2-3 TIMES A WEEK
     Route: 048
  3. KLONOPIN [Suspect]
     Active Substance: CLONAZEPAM
     Route: 048
     Dates: start: 20150630
  4. KLONOPIN [Suspect]
     Active Substance: CLONAZEPAM
     Dosage: 2-3 TIMES A WEEK, SHE TOOK HALF OF A 0.5 MG OF CLONAZEPAM
     Route: 048
     Dates: start: 20150624

REACTIONS (4)
  - Asthenia [Recovered/Resolved]
  - Malaise [Unknown]
  - Product quality issue [Unknown]
  - Viral infection [Recovered/Resolved]
